FAERS Safety Report 5519885-0 (Version None)
Quarter: 2007Q4

REPORT INFORMATION
  Report Type: 
  Country: None (occurrence: None)
  Receive Date: 20071116
  Receipt Date: 20071009
  Transmission Date: 20080405
  Serious: No
  Sender: FDA-Public Use
  Company Number: A0686664A

PATIENT
  Age: 80 Year
  Sex: Female

DRUGS (10)
  1. COREG CR [Suspect]
     Dosage: 10MG PER DAY
     Route: 048
     Dates: start: 20070806
  2. OMEPRAZOLE [Concomitant]
  3. AMARYL [Concomitant]
  4. LIPITOR [Concomitant]
  5. ISOSORBIDE DINITRATE [Concomitant]
  6. HYDRALAZINE HCL [Concomitant]
  7. ASPIRIN [Concomitant]
  8. TEMAZEPAM [Concomitant]
  9. MUCINEX [Concomitant]
  10. CALTRATE + D [Concomitant]

REACTIONS (4)
  - DYSPNOEA [None]
  - HEART RATE DECREASED [None]
  - HYPOTENSION [None]
  - WEIGHT DECREASED [None]
